FAERS Safety Report 9477073 (Version 1)
Quarter: 2013Q3

REPORT INFORMATION
  Report Type: Spontaneous
  Country: CN (occurrence: CN)
  Receive Date: 20130826
  Receipt Date: 20130826
  Transmission Date: 20140515
  Serious: Yes (Hospitalization)
  Sender: FDA-Public Use
  Company Number: CN-BAYER-2013-098723

PATIENT
  Sex: Female
  Weight: .89 kg

DRUGS (14)
  1. NIFEDIPINE [Suspect]
     Route: 064
  2. NIFEDIPINE [Suspect]
     Route: 064
  3. MAGNESIUM SULFATE [Concomitant]
     Route: 064
  4. MAGNESIUM SULFATE [Concomitant]
     Route: 064
  5. CEFTRIAXONE [Concomitant]
     Route: 064
  6. CEFTRIAXONE [Concomitant]
     Route: 064
  7. METRONIDAZOLE [Concomitant]
     Route: 064
  8. METRONIDAZOLE [Concomitant]
     Route: 064
  9. DEXAMETHASONE [Concomitant]
     Route: 064
  10. DEXAMETHASONE [Concomitant]
     Route: 064
  11. ERYTHROMYCIN [Concomitant]
     Route: 064
  12. ERYTHROMYCIN [Concomitant]
     Route: 064
  13. ATOSIBAN [Concomitant]
     Route: 064
  14. ATOSIBAN [Concomitant]
     Route: 064

REACTIONS (1)
  - Premature baby [Recovering/Resolving]
